FAERS Safety Report 25071390 (Version 2)
Quarter: 2025Q2

REPORT INFORMATION
  Report Type: Spontaneous
  Country: JP (occurrence: JP)
  Receive Date: 20250312
  Receipt Date: 20250401
  Transmission Date: 20250716
  Serious: Yes (Other)
  Sender: NEUROCRINE BIOSCIENCES
  Company Number: JP-MTPC-MTPC2025-0004257

PATIENT
  Age: 49 Year
  Sex: Male

DRUGS (6)
  1. VALBENAZINE [Suspect]
     Active Substance: VALBENAZINE
     Indication: Product used for unknown indication
     Route: 048
     Dates: start: 202404, end: 20250301
  2. VALBENAZINE [Suspect]
     Active Substance: VALBENAZINE
     Route: 048
     Dates: start: 20240301
  3. FLUNITRAZEPAM [Concomitant]
     Active Substance: FLUNITRAZEPAM
     Route: 065
     Dates: start: 201501
  4. CLONAZEPAM [Concomitant]
     Active Substance: CLONAZEPAM
     Route: 065
     Dates: start: 201501
  5. URAPIDIL [Concomitant]
     Active Substance: URAPIDIL
     Route: 065
     Dates: start: 201501
  6. DAYVIGO [Concomitant]
     Active Substance: LEMBOREXANT
     Route: 065
     Dates: start: 202308

REACTIONS (3)
  - Movement disorder [Unknown]
  - Dysuria [Unknown]
  - Parkinsonism [Unknown]

NARRATIVE: CASE EVENT DATE: 20250101
